FAERS Safety Report 7681820 (Version 6)
Quarter: 2013Q2

REPORT INFORMATION
  Report Type: Spontaneous
  Country: US (occurrence: US)
  Receive Date: 20101124
  Receipt Date: 20130515
  Transmission Date: 20140414
  Serious: Yes (Other)
  Sender: FDA-Public Use
  Company Number: US-BAXTER-2010BH028213

PATIENT
  Age: 1 Year
  Sex: Male
  Weight: 28.8 kg

DRUGS (4)
  1. ADVATE [Suspect]
     Indication: FACTOR VIII DEFICIENCY
     Route: 065
     Dates: start: 201011
  2. ADVATE [Suspect]
     Route: 065
  3. ADVATE [Suspect]
     Route: 042
     Dates: start: 200307, end: 20101112
  4. KOGENATE [Concomitant]
     Indication: FACTOR VIII DEFICIENCY

REACTIONS (7)
  - Dyspnoea [Recovered/Resolved]
  - Chest pain [Recovered/Resolved]
  - Cyanosis [Recovered/Resolved]
  - Diarrhoea [Unknown]
  - Hypersensitivity [Not Recovered/Not Resolved]
  - Primary hypothyroidism [Not Recovered/Not Resolved]
  - Primary adrenal insufficiency [Not Recovered/Not Resolved]
